FAERS Safety Report 15698798 (Version 5)
Quarter: 2025Q2

REPORT INFORMATION
  Report Type: Spontaneous
  Country: CA (occurrence: CA)
  Receive Date: 20181207
  Receipt Date: 20250627
  Transmission Date: 20250717
  Serious: Yes (Death, Life-Threatening, Hospitalization, Other)
  Sender: ASTELLAS
  Company Number: CA-ASTELLAS-2018US051668

PATIENT
  Age: 76 Year
  Sex: Male

DRUGS (14)
  1. TACROLIMUS [Suspect]
     Active Substance: TACROLIMUS
     Indication: Renal transplant
     Dosage: 25 MG, ONCE DAILY (EXTENDED RELEASE)
     Route: 065
  2. TACROLIMUS [Suspect]
     Active Substance: TACROLIMUS
     Indication: Immunosuppressant drug therapy
     Route: 065
  3. TACROLIMUS [Suspect]
     Active Substance: TACROLIMUS
     Indication: Prophylaxis against transplant rejection
  4. MYCOPHENOLATE MOFETIL [Suspect]
     Active Substance: MYCOPHENOLATE MOFETIL
     Indication: Renal transplant
     Route: 065
  5. MYCOPHENOLATE MOFETIL [Suspect]
     Active Substance: MYCOPHENOLATE MOFETIL
     Indication: Immunosuppressant drug therapy
     Route: 065
  6. MYCOPHENOLATE MOFETIL [Suspect]
     Active Substance: MYCOPHENOLATE MOFETIL
     Indication: Prophylaxis against transplant rejection
     Route: 065
  7. PREDNISONE [Suspect]
     Active Substance: PREDNISONE
     Indication: Renal transplant
     Dosage: 5 MG, ONCE DAILY
     Route: 065
  8. PREDNISONE [Suspect]
     Active Substance: PREDNISONE
     Indication: Immunosuppressant drug therapy
  9. PREDNISONE [Suspect]
     Active Substance: PREDNISONE
     Indication: Prophylaxis against transplant rejection
  10. AMLODIPINE [Concomitant]
     Active Substance: AMLODIPINE BESYLATE
     Indication: Product used for unknown indication
     Route: 065
  11. ARANESP [Concomitant]
     Active Substance: DARBEPOETIN ALFA
     Indication: Product used for unknown indication
     Route: 065
  12. CALCITRIOL [Concomitant]
     Active Substance: CALCITRIOL
     Indication: Product used for unknown indication
     Route: 065
  13. LABETALOL [Concomitant]
     Active Substance: LABETALOL
     Indication: Product used for unknown indication
     Route: 065
  14. DARBEPOETIN ALFA [Concomitant]
     Active Substance: DARBEPOETIN ALFA
     Indication: Product used for unknown indication
     Route: 065

REACTIONS (19)
  - Multiple organ dysfunction syndrome [Fatal]
  - Multiple organ dysfunction syndrome [Fatal]
  - Mycobacterium marinum infection [Fatal]
  - Brain injury [Fatal]
  - Cardiac arrest [Fatal]
  - Zoonotic bacterial infection [Fatal]
  - Asthenia [Fatal]
  - Candida infection [Fatal]
  - Decreased appetite [Fatal]
  - Enterobacter infection [Fatal]
  - Pseudomonas infection [Fatal]
  - Staphylococcal infection [Fatal]
  - Complications of transplanted kidney [Unknown]
  - Weight decreased [Fatal]
  - Renal transplant failure [Unknown]
  - Chronic kidney disease [Unknown]
  - Loss of personal independence in daily activities [Fatal]
  - Skin lesion [Unknown]
  - Product use in unapproved indication [Unknown]
